FAERS Safety Report 19963617 (Version 1)
Quarter: 2021Q4

REPORT INFORMATION
  Report Type: Spontaneous
  Country: US (occurrence: US)
  Receive Date: 20211013
  Receipt Date: 20211013
  Transmission Date: 20220303
  Serious: No
  Sender: FDA-Public Use
  Company Number: None

PATIENT
  Sex: Female

DRUGS (1)
  1. GLYCERIN [Suspect]
     Active Substance: GLYCERIN
     Dosage: ?          OTHER DOSE:1-2 DROPS;
     Route: 031
     Dates: start: 20200301, end: 20211010

REACTIONS (10)
  - Product use complaint [None]
  - Incorrect dose administered by device [None]
  - Device use issue [None]
  - Product delivery mechanism issue [None]
  - Ocular hyperaemia [None]
  - Eye irritation [None]
  - Eyelid irritation [None]
  - Erythema of eyelid [None]
  - Eye allergy [None]
  - Allergic reaction to excipient [None]

NARRATIVE: CASE EVENT DATE: 20210801
